FAERS Safety Report 24134394 (Version 1)
Quarter: 2024Q3

REPORT INFORMATION
  Report Type: Spontaneous
  Country: US (occurrence: US)
  Receive Date: 20240725
  Receipt Date: 20240725
  Transmission Date: 20241016
  Serious: No
  Sender: ACCORD
  Company Number: US-Accord-421916

PATIENT
  Sex: Female

DRUGS (1)
  1. FLUOROURACIL [Suspect]
     Active Substance: FLUOROURACIL
     Indication: Basal cell carcinoma
     Dosage: STRENGTH: 5 %, TOPICAL CREAM, 1-2 PER DAY, FOR TWO WEEKS

REACTIONS (1)
  - Skin discolouration [Unknown]
